FAERS Safety Report 8244378-X (Version None)
Quarter: 2012Q1

REPORT INFORMATION
  Report Type: 
  Country: None (occurrence: None)
  Receive Date: 20120329
  Receipt Date: 20120325
  Transmission Date: 20120608
  Serious: Yes (Hospitalization)
  Sender: FDA-Public Use
  Company Number: ES-PFIZER INC-2012076841

PATIENT
  Sex: Male

DRUGS (1)
  1. AXITINIB [Suspect]
     Dosage: UNK
     Dates: start: 20120201

REACTIONS (1)
  - VERTIGO [None]
